FAERS Safety Report 7046334-6 (Version None)
Quarter: 2010Q4

REPORT INFORMATION
  Report Type: 
  Country: None (occurrence: None)
  Receive Date: 20101014
  Receipt Date: 20101004
  Transmission Date: 20110411
  Serious: Yes (Hospitalization)
  Sender: FDA-Public Use
  Company Number: GXKR2010IL11197

PATIENT
  Age: 63 Year
  Sex: Female

DRUGS (10)
  1. CAPECITABINE (NGX) [Suspect]
     Indication: COLON CANCER METASTATIC
     Dosage: 850 MG/M2, BID, DAYS 1-14 EVERY 3 WEEKS
     Route: 048
  2. CAPECITABINE (NGX) [Suspect]
     Dosage: 700 MG, BID
     Route: 048
  3. OXALIPLATIN (NGX) [Suspect]
     Indication: COLON CANCER METASTATIC
     Dosage: 85 MG/M2 ON DAY 1 EVERY 2 WEEKS FOR 1 MONTH
     Route: 042
  4. OXALIPLATIN (NGX) [Suspect]
     Dosage: 110 MG ON DAY 1
     Route: 042
  5. CETUXIMAB [Suspect]
     Indication: COLON CANCER METASTATIC
     Dosage: 400 MG/M2 LOADING DOSE
     Route: 042
  6. CETUXIMAB [Suspect]
     Dosage: 250 MG/M2/WEEK
     Route: 042
  7. CETUXIMAB [Suspect]
     Dosage: 400 MG WEEKLY
     Route: 042
  8. CETUXIMAB [Suspect]
     Dosage: 800 MG BIWEEKLY, ONCE
     Route: 042
  9. NEUPOGEN [Suspect]
  10. IRINOTECAN HCL [Concomitant]
     Indication: COLON CANCER METASTATIC
     Route: 065

REACTIONS (18)
  - ASTHENIA [None]
  - COLON CANCER METASTATIC [None]
  - DRUG EFFECT DECREASED [None]
  - FANCONI SYNDROME [None]
  - GLYCOSURIA [None]
  - HYPERURICOSURIA [None]
  - HYPOKALAEMIA [None]
  - ILEUS PARALYTIC [None]
  - MALIGNANT NEOPLASM PROGRESSION [None]
  - METABOLIC ACIDOSIS [None]
  - NERVOUS SYSTEM DISORDER [None]
  - PARAESTHESIA [None]
  - PH URINE INCREASED [None]
  - PROTEINURIA [None]
  - RENAL TUBULAR ACIDOSIS [None]
  - SEPSIS [None]
  - URINE PHOSPHATE DECREASED [None]
  - WHITE BLOOD CELL COUNT DECREASED [None]
